FAERS Safety Report 7388862-X (Version None)
Quarter: 2011Q2

REPORT INFORMATION
  Report Type: 
  Country: None (occurrence: None)
  Receive Date: 20110401
  Receipt Date: 20101014
  Transmission Date: 20111010
  Serious: Yes (Hospitalization, Other)
  Sender: FDA-Public Use
  Company Number: US-BAYER-201016084NA

PATIENT
  Sex: Female
  Weight: 77.098 kg

DRUGS (7)
  1. YASMIN [Suspect]
     Indication: PRODUCT USED FOR UNKNOWN INDICATION
     Dosage: UNK
     Dates: start: 20040101, end: 20040601
  2. POTASSIUM [POTASSIUM] [Concomitant]
  3. SYNTHROID [Concomitant]
  4. NSAID'S [Concomitant]
  5. ASCORBIC ACID [Concomitant]
  6. YAZ [Suspect]
     Indication: PRODUCT USED FOR UNKNOWN INDICATION
     Dosage: UNK
  7. CARDURA [Concomitant]

REACTIONS (4)
  - HYPERKALAEMIA [None]
  - SYSTEMIC LUPUS ERYTHEMATOSUS [None]
  - NEPHRITIS [None]
  - RENAL INJURY [None]
